FAERS Safety Report 7131054-X (Version None)
Quarter: 2010Q4

REPORT INFORMATION
  Report Type: 
  Country: None (occurrence: None)
  Receive Date: 20101101
  Receipt Date: 20100825
  Transmission Date: 20110411
  Serious: Yes (Other)
  Sender: FDA-Public Use
  Company Number: AMAG201000333

PATIENT
  Age: 81 Year
  Sex: Female
  Weight: 72.6 kg

DRUGS (1)
  1. FERAHEME [Suspect]
     Indication: IRON DEFICIENCY ANAEMIA
     Dosage: 180 MG, (6 ML) SINGLE, INTRAMUSCULAR
     Route: 030
     Dates: start: 20100824, end: 20100824

REACTIONS (7)
  - BACK PAIN [None]
  - CHEST DISCOMFORT [None]
  - CHEST PAIN [None]
  - DYSPNOEA [None]
  - HYPERTENSION [None]
  - NECK PAIN [None]
  - PAIN [None]
